FAERS Safety Report 5212648-5 (Version None)
Quarter: 2007Q1

REPORT INFORMATION
  Report Type: 
  Country: None (occurrence: None)
  Receive Date: 20070118
  Receipt Date: 20070107
  Transmission Date: 20070707
  Serious: Yes (Other)
  Sender: FDA-Public Use
  Company Number: US-PFIZER INC-2007003184

PATIENT
  Sex: Male

DRUGS (1)
  1. LYRICA [Suspect]
     Indication: BONE PAIN

REACTIONS (3)
  - ERECTILE DYSFUNCTION [None]
  - HYPOAESTHESIA [None]
  - SENSORY LOSS [None]
